FAERS Safety Report 6661501-9 (Version None)
Quarter: 2010Q1

REPORT INFORMATION
  Report Type: 
  Country: None (occurrence: None)
  Receive Date: 20100331
  Receipt Date: 20100322
  Transmission Date: 20100710
  Serious: Yes (Hospitalization, Other)
  Sender: FDA-Public Use
  Company Number: FR-PFIZER INC-2010036140

PATIENT
  Age: 35 Year
  Sex: Female

DRUGS (15)
  1. ZITHROMAX [Suspect]
     Indication: ASTHMA
     Dosage: 250 MG, ALTERNATE DAY
     Route: 048
     Dates: start: 20080829, end: 20081115
  2. PULMICORT [Concomitant]
     Indication: ASTHMA
     Dosage: UNK
     Route: 055
  3. OMEPRAZOLE [Concomitant]
     Dosage: UNK
     Route: 048
  4. ATROVENT [Concomitant]
     Indication: ASTHMA
     Dosage: UNK
     Route: 055
  5. SERETIDE DISKUS [Concomitant]
     Indication: ASTHMA
     Dosage: 1 DF, 2X/DAY
     Route: 055
  6. SERETIDE DISKUS [Concomitant]
     Dosage: 250 UG
     Route: 055
  7. HYDROCORTISONE [Concomitant]
     Indication: ASTHMA
     Dosage: 45 DF, MONTHLY
     Route: 048
  8. POLARAMINE [Concomitant]
     Indication: ASTHMA
     Dosage: 2 MG PER DAY MORE OR LESS 1 OR 2
     Route: 048
  9. SINGULAIR [Concomitant]
     Indication: ASTHMA
     Dosage: 10 MG, 1X/DAY
     Route: 048
  10. VENTOLIN [Concomitant]
     Indication: ASTHMA
     Dosage: 2 TO 6 PUFFS PER DAY AS NEEDED
     Route: 055
  11. VENTOLIN [Concomitant]
     Dosage: 1 OR 2 DF PER DAY
     Route: 055
  12. EBASTINE [Concomitant]
     Indication: ASTHMA
     Dosage: 10 MG, 2X/DAY
     Route: 048
  13. EBASTINE [Concomitant]
     Dosage: 10 MG, 1X/DAY
     Route: 048
  14. CELESTAMINE TAB [Concomitant]
     Indication: ASTHMA
     Dosage: 1 DF, 1X/DAY
     Route: 048
  15. CORTANCYL [Concomitant]

REACTIONS (1)
  - TONIC CONVULSION [None]
